FAERS Safety Report 5746448-4 (Version None)
Quarter: 2008Q2

REPORT INFORMATION
  Report Type: 
  Country: None (occurrence: None)
  Receive Date: 20080522
  Receipt Date: 20080516
  Transmission Date: 20081010
  Serious: Yes (Congenital Anomaly, Other)
  Sender: FDA-Public Use
  Company Number: B0512575A

PATIENT
  Sex: Male
  Weight: 3.02 kg

DRUGS (7)
  1. PAXIL [Suspect]
     Indication: PANIC DISORDER
     Dosage: 20MG PER DAY
     Dates: start: 20060314, end: 20070801
  2. AMOBAN [Suspect]
     Indication: PANIC DISORDER
     Dosage: 7.5MG PER DAY
     Dates: end: 20080201
  3. PREDNISONE [Suspect]
     Indication: NEPHROTIC SYNDROME
     Dates: start: 20070612, end: 20080309
  4. SOLANAX [Suspect]
     Indication: PANIC DISORDER
     Dosage: .4MG PER DAY
     Dates: start: 20060314, end: 20080201
  5. WINTERMIN [Suspect]
     Indication: PANIC DISORDER
     Dosage: 25MG PER DAY
     Dates: start: 20070313, end: 20070701
  6. LEXOTAN [Suspect]
     Indication: PANIC DISORDER
     Dosage: 2MG PER DAY
     Dates: start: 20060314, end: 20070701
  7. UNKNOWN [Concomitant]
     Indication: UTERINE HYPOTONUS
     Dates: start: 20080309, end: 20080309

REACTIONS (5)
  - ABNORMAL PALMAR/PLANTAR CREASES [None]
  - CRANIOTABES [None]
  - DRUG EXPOSURE DURING PREGNANCY [None]
  - EAR MALFORMATION [None]
  - JAUNDICE NEONATAL [None]
